FAERS Safety Report 13850217 (Version 1)
Quarter: 2017Q3

REPORT INFORMATION
  Report Type: Other
  Country: GB (occurrence: US)
  Receive Date: 20170809
  Receipt Date: 20170809
  Transmission Date: 20171127
  Serious: Yes (Death, Other)
  Sender: FDA-Public Use
  Company Number: US-INTERNATIONAL MEDICATION SYSTEMS, LIMITED-2024430

PATIENT
  Age: 7 Year
  Sex: Male

DRUGS (1)
  1. EPINEPHRINE, UNDILUTED [Suspect]
     Active Substance: EPINEPHRINE

REACTIONS (1)
  - Incorrect dose administered [Fatal]
